FAERS Safety Report 24427445 (Version 1)
Quarter: 2024Q4

REPORT INFORMATION
  Report Type: Spontaneous
  Country: PL (occurrence: PL)
  Receive Date: 20241011
  Receipt Date: 20241011
  Transmission Date: 20250115
  Serious: Yes (Hospitalization)
  Sender: MYLAN
  Company Number: None

PATIENT
  Age: 86 Year
  Sex: Female

DRUGS (10)
  1. SERTRALINE HYDROCHLORIDE [Suspect]
     Active Substance: SERTRALINE HYDROCHLORIDE
     Indication: Depression
     Dosage: UNK UNK, QD (1-0-0)
     Route: 048
  2. SULODEXIDE [Suspect]
     Active Substance: SULODEXIDE
     Indication: Peripheral venous disease
     Dosage: UNK UNK, QD (1-0-0)
     Route: 048
  3. TRIMETAZIDINE DIHYDROCHLORIDE [Suspect]
     Active Substance: TRIMETAZIDINE DIHYDROCHLORIDE
     Indication: Myocardial ischaemia
     Dosage: UNK UNK, BID (1-0-1)
     Route: 048
  4. ACETAMINOPHEN\TRAMADOL HYDROCHLORIDE [Suspect]
     Active Substance: ACETAMINOPHEN\TRAMADOL HYDROCHLORIDE
     Indication: Analgesic therapy
     Dosage: UNK UNK, BID (1-0-1)
     Route: 048
  5. ATORVASTATIN CALCIUM [Suspect]
     Active Substance: ATORVASTATIN CALCIUM
     Indication: Cardiovascular event prophylaxis
     Dosage: UNK UNK, QD (1-0-0)
     Route: 048
  6. VINPOCETINE [Concomitant]
     Active Substance: VINPOCETINE
     Indication: Cardiovascular disorder
     Dosage: 10 MILLIGRAM, TID
     Route: 048
  7. OMEPRAZOLE [Concomitant]
     Active Substance: OMEPRAZOLE
     Indication: Prophylaxis
     Dosage: UNK UNK, QD (1-0-0)
     Route: 048
  8. VESTIBO [Concomitant]
     Indication: Dizziness
     Dosage: UNK UNK, BID (1-0-1, 24)
     Route: 048
  9. ASPIRIN [Concomitant]
     Active Substance: ASPIRIN
     Indication: Myocardial ischaemia
     Dosage: UNK UNK, QD (1-0-0)
     Route: 048
  10. CLOPIDOGREL BISULFATE [Concomitant]
     Active Substance: CLOPIDOGREL BISULFATE
     Indication: Myocardial ischaemia
     Dosage: UNK UNK, QD (1-0-0)
     Route: 048

REACTIONS (2)
  - Fall [Recovering/Resolving]
  - Femoral neck fracture [Recovering/Resolving]

NARRATIVE: CASE EVENT DATE: 20201025
